FAERS Safety Report 7506839-8 (Version None)
Quarter: 2011Q2

REPORT INFORMATION
  Report Type: 
  Country: None (occurrence: None)
  Receive Date: 20110526
  Receipt Date: 20110518
  Transmission Date: 20111010
  Serious: Yes (Hospitalization)
  Sender: FDA-Public Use
  Company Number: B0713779A

PATIENT
  Sex: Male

DRUGS (5)
  1. IOHEXOL [Concomitant]
     Dates: start: 20110401
  2. ASPIRIN [Concomitant]
     Indication: THROMBOSIS PROPHYLAXIS
     Dosage: 100MG PER DAY
     Route: 048
     Dates: start: 20100506
  3. DEPAKENE [Concomitant]
     Indication: CONVULSION
     Dosage: 1200MG PER DAY
     Route: 048
     Dates: start: 20100506
  4. LAMICTAL [Suspect]
     Indication: EPILEPSY
     Route: 048
     Dates: start: 20110214, end: 20110409
  5. MAGMITT [Concomitant]
     Indication: CONSTIPATION
     Dosage: 990MG PER DAY
     Route: 048
     Dates: start: 20100506

REACTIONS (10)
  - HYPERTHERMIA [None]
  - PYREXIA [None]
  - GENERALISED ERYTHEMA [None]
  - GAMMA-GLUTAMYLTRANSFERASE INCREASED [None]
  - INFLUENZA [None]
  - DECREASED APPETITE [None]
  - C-REACTIVE PROTEIN INCREASED [None]
  - HAEMOGLOBIN DECREASED [None]
  - DRUG ERUPTION [None]
  - BLOOD CREATININE DECREASED [None]
